FAERS Safety Report 7217659-6 (Version None)
Quarter: 2011Q1

REPORT INFORMATION
  Report Type: 
  Country: None (occurrence: None)
  Receive Date: 20110110
  Receipt Date: 20110104
  Transmission Date: 20110831
  Serious: Yes (Death, Other)
  Sender: FDA-Public Use
  Company Number: CH-ROCHE-751472

PATIENT

DRUGS (2)
  1. PEGINTERFERON ALFA-2A [Suspect]
     Indication: HEPATITIS C
     Route: 065
  2. RIBAVARIN [Suspect]
     Indication: HEPATITIS C
     Route: 065

REACTIONS (12)
  - NEUTROPENIA [None]
  - DEPRESSION [None]
  - HEPATIC FAILURE [None]
  - ABSCESS [None]
  - MYOCARDIAL INFARCTION [None]
  - TOXIC SKIN ERUPTION [None]
  - FATIGUE [None]
  - LOSS OF LIBIDO [None]
  - PULMONARY SARCOIDOSIS [None]
  - MIGRAINE [None]
  - CACHEXIA [None]
  - PRURITUS [None]
